FAERS Safety Report 8906404 (Version 1)
Quarter: 2012Q4

REPORT INFORMATION
  Report Type: Spontaneous
  Country: US (occurrence: None)
  Receive Date: 20121109
  Receipt Date: 20121109
  Transmission Date: 20130627
  Serious: Yes (Other)
  Sender: FDA-Public Use
  Company Number: None

PATIENT
  Age: 45 Year
  Sex: Female
  Weight: 88 kg

DRUGS (1)
  1. DICLOFENAC [Suspect]
     Indication: ARTHRITIS
     Dates: start: 200105, end: 20120925

REACTIONS (3)
  - Gastric ulcer [None]
  - Gastritis [None]
  - Nausea [None]
